FAERS Safety Report 25765858 (Version 1)
Quarter: 2025Q3

REPORT INFORMATION
  Report Type: Spontaneous
  Country: US (occurrence: US)
  Receive Date: 20250905
  Receipt Date: 20250905
  Transmission Date: 20251020
  Serious: No
  Sender: DOMPE FARMACEUTICI
  Company Number: US-FARMAPROD-202407-2573

PATIENT
  Sex: Female

DRUGS (30)
  1. OXERVATE [Suspect]
     Active Substance: CENEGERMIN-BKBJ
     Indication: Neurotrophic keratopathy
     Route: 047
     Dates: start: 20240604
  2. ZINC [Concomitant]
     Active Substance: ZINC
  3. OMEPRAZOLE [Concomitant]
     Active Substance: OMEPRAZOLE
  4. REFRESH TEARS [Concomitant]
     Active Substance: CARBOXYMETHYLCELLULOSE SODIUM
  5. TRAMADOL HCL [Concomitant]
     Active Substance: TRAMADOL HYDROCHLORIDE
  6. TERBINAFINE HYDROCHLORIDE [Concomitant]
     Active Substance: TERBINAFINE HYDROCHLORIDE
  7. ROSUVASTATIN CALCIUM [Concomitant]
     Active Substance: ROSUVASTATIN CALCIUM
  8. RESTASIS [Concomitant]
     Active Substance: CYCLOSPORINE
  9. RALOXIFENE [Concomitant]
     Active Substance: RALOXIFENE
  10. OXYBUTYNIN CHLORIDE [Concomitant]
     Active Substance: OXYBUTYNIN CHLORIDE
  11. OLMESARTAN MEDOXOMIL [Concomitant]
     Active Substance: OLMESARTAN MEDOXOMIL
  12. VITAMINS [Concomitant]
     Active Substance: VITAMINS
  13. METOPROLOL SUCCINATE [Concomitant]
     Active Substance: METOPROLOL SUCCINATE
  14. METFORMIN HYDROCHLORIDE [Concomitant]
     Active Substance: METFORMIN HYDROCHLORIDE
  15. MAGNESIUM [Concomitant]
     Active Substance: MAGNESIUM
  16. GABAPENTIN [Concomitant]
     Active Substance: GABAPENTIN
  17. FUROSEMIDE [Concomitant]
     Active Substance: FUROSEMIDE
  18. FLUTICASONE PROPIONATE [Concomitant]
     Active Substance: FLUTICASONE PROPIONATE
  19. OMEGA 3 [Concomitant]
     Active Substance: CAPSAICIN
  20. FERROUS SULFATE [Concomitant]
     Active Substance: FERROUS SULFATE
  21. FAMOTIDINE [Concomitant]
     Active Substance: FAMOTIDINE
  22. CYANOCOBALAMIN [Concomitant]
     Active Substance: CYANOCOBALAMIN
  23. CETIRIZINE HCL [Concomitant]
     Active Substance: CETIRIZINE HYDROCHLORIDE
  24. CALCIUM [Concomitant]
     Active Substance: CALCIUM
  25. AZO BLADDER CONTROL [Concomitant]
  26. ASPIRIN [Concomitant]
     Active Substance: ASPIRIN
  27. VITAMIN C [Concomitant]
     Active Substance: ASCORBIC ACID
  28. AMLODIPINE BESYLATE [Concomitant]
     Active Substance: AMLODIPINE BESYLATE
  29. ACYCLOVIR [Concomitant]
     Active Substance: ACYCLOVIR
  30. ACETAMINOPHEN [Concomitant]
     Active Substance: ACETAMINOPHEN

REACTIONS (3)
  - Eye pain [Unknown]
  - Ocular discomfort [Unknown]
  - Product dose omission issue [Unknown]
